FAERS Safety Report 14280775 (Version 2)
Quarter: 2017Q4

REPORT INFORMATION
  Report Type: Report from Study
  Country: US (occurrence: US)
  Receive Date: 20171213
  Receipt Date: 20171213
  Transmission Date: 20180321
  Serious: Yes (Death, Other)
  Sender: FDA-Public Use
  Company Number: US-GILEAD-2017-0309927

PATIENT
  Age: 69 Year
  Sex: Female

DRUGS (13)
  1. RESTASIS [Concomitant]
     Active Substance: CYCLOSPORINE
  2. XARELTO [Concomitant]
     Active Substance: RIVAROXABAN
  3. SILDENAFIL. [Concomitant]
     Active Substance: SILDENAFIL
  4. PREDNISOLONE. [Concomitant]
     Active Substance: PREDNISOLONE
  5. XARELTO [Concomitant]
     Active Substance: RIVAROXABAN
  6. SILDENAFIL. [Concomitant]
     Active Substance: SILDENAFIL
  7. FUROSEMIDE. [Concomitant]
     Active Substance: FUROSEMIDE
  8. UPTRAVI [Concomitant]
     Active Substance: SELEXIPAG
  9. POTASSIUM [Concomitant]
     Active Substance: POTASSIUM
  10. AMBRISENTAN [Suspect]
     Active Substance: AMBRISENTAN
     Indication: PULMONARY ARTERIAL HYPERTENSION
     Dosage: 10 MG, QD
     Route: 065
     Dates: start: 20131108, end: 20171206
  11. UPTRAVI [Concomitant]
     Active Substance: SELEXIPAG
  12. FUROSEMIDE. [Concomitant]
     Active Substance: FUROSEMIDE
  13. IRON [Concomitant]
     Active Substance: IRON

REACTIONS (1)
  - Death [Fatal]

NARRATIVE: CASE EVENT DATE: 20171206
